FAERS Safety Report 8608363-8 (Version None)
Quarter: 2012Q3

REPORT INFORMATION
  Report Type: 
  Country: None (occurrence: None)
  Receive Date: 20120821
  Receipt Date: 20120816
  Transmission Date: 20120928
  Serious: Yes (Other)
  Sender: FDA-Public Use
  Company Number: TW-ROCHE-1103040

PATIENT

DRUGS (3)
  1. ROCEPHIN [Suspect]
     Indication: MENINGITIS BACTERIAL
     Route: 042
  2. VANCOMYCIN [Concomitant]
     Indication: MENINGITIS BACTERIAL
     Route: 042
  3. PENICILLIN G [Concomitant]
     Indication: MENINGITIS BACTERIAL
     Route: 042

REACTIONS (1)
  - HEPATOTOXICITY [None]
